FAERS Safety Report 4833680-7 (Version None)
Quarter: 2005Q4

REPORT INFORMATION
  Report Type: 
  Country: None (occurrence: None)
  Receive Date: 20051114
  Receipt Date: 20051104
  Transmission Date: 20060501
  Serious: Yes (Hospitalization, Other)
  Sender: FDA-Public Use
  Company Number: US_010158781

PATIENT
  Age: 57 Year
  Sex: Female
  Weight: 136 kg

DRUGS (6)
  1. HUMALOG [Suspect]
     Indication: DIABETES MELLITUS
     Dates: start: 20040101
  2. HUMULIN N [Suspect]
     Indication: DIABETES MELLITUS
     Dates: start: 19960101, end: 20001101
  3. HUMULIN-HUMAN INSULIN (RNDA): 20% REGULAR, 70% NPH (H [Suspect]
     Indication: DIABETES MELLITUS
     Dosage: 105 U DAY
     Dates: start: 20001101, end: 20040101
  4. HUMULIN R [Suspect]
     Indication: DIABETES MELLITUS
     Dosage: 6 U DAY
     Dates: start: 20001101, end: 20040101
  5. AVANDIA [Concomitant]
  6. GLUCOTROL XL [Concomitant]

REACTIONS (13)
  - ABDOMINAL HERNIA REPAIR [None]
  - BLOOD GLUCOSE DECREASED [None]
  - BLOOD GLUCOSE INCREASED [None]
  - CATARACT OPERATION [None]
  - FALL [None]
  - GLYCOSYLATED HAEMOGLOBIN INCREASED [None]
  - OEDEMA [None]
  - OEDEMA PERIPHERAL [None]
  - PERICARDIAL DISEASE [None]
  - SENSORY LOSS [None]
  - UPPER LIMB FRACTURE [None]
  - WEIGHT DECREASED [None]
  - WOUND INFECTION [None]
